FAERS Safety Report 5929798-8 (Version None)
Quarter: 2008Q4

REPORT INFORMATION
  Report Type: 
  Country: None (occurrence: None)
  Receive Date: 20081024
  Receipt Date: 20081014
  Transmission Date: 20090506
  Serious: Yes (Hospitalization)
  Sender: FDA-Public Use
  Company Number: JP-JNJFOC-20080903132

PATIENT
  Age: 22 Year
  Sex: Female

DRUGS (3)
  1. TOPINA [Suspect]
     Indication: EPILEPSY
     Route: 048
  2. CARBAMAZEPINE [Interacting]
     Indication: DRUG USE FOR UNKNOWN INDICATION
     Route: 048
  3. PHENOBARBITAL TAB [Concomitant]
     Route: 048

REACTIONS (3)
  - DRUG INTERACTION [None]
  - DRUG LEVEL DECREASED [None]
  - STATUS EPILEPTICUS [None]
